FAERS Safety Report 5271001-9 (Version None)
Quarter: 2007Q1

REPORT INFORMATION
  Report Type: 
  Country: None (occurrence: None)
  Receive Date: 20061214
  Receipt Date: 20051125
  Transmission Date: 20070707
  Serious: Yes (Other)
  Sender: FDA-Public Use
  Company Number: 2005066118

PATIENT
  Sex: Female

DRUGS (2)
  1. BEXTRA [Suspect]
     Indication: ILL-DEFINED DISORDER
     Dosage: 10 MG (10 MG, 1 IN 1 D), ORAL
     Route: 048
     Dates: start: 20040304, end: 20040901
  2. LORTAB [Concomitant]

REACTIONS (5)
  - CHEST PAIN [None]
  - LOSS OF CONSCIOUSNESS [None]
  - PAIN [None]
  - PALPITATIONS [None]
  - SKIN EXFOLIATION [None]
